FAERS Safety Report 23085459 (Version 1)
Quarter: 2023Q4

REPORT INFORMATION
  Report Type: Spontaneous
  Country: DE (occurrence: DE)
  Receive Date: 20231019
  Receipt Date: 20231019
  Transmission Date: 20240110
  Serious: Yes (Hospitalization)
  Sender: FDA-Public Use
  Company Number: DE-DCGMA-23201919

PATIENT
  Age: 13 Year
  Sex: Female
  Weight: 60 kg

DRUGS (6)
  1. RITUXIMAB [Suspect]
     Active Substance: RITUXIMAB
     Indication: Microscopic polyangiitis
     Dosage: 580 MG
     Route: 042
     Dates: start: 20230714, end: 20230728
  2. PREDNISOLONE SODIUM PHOSPHATE [Concomitant]
     Active Substance: PREDNISOLONE SODIUM PHOSPHATE
     Indication: Microscopic polyangiitis
     Dosage: REDUCTION REGIMEN 40-20-20-0 MG
     Route: 048
     Dates: start: 20230620
  3. PANTOPRAZOLE SODIUM [Concomitant]
     Active Substance: PANTOPRAZOLE SODIUM
     Dosage: 40 MG, 1X/DAY
     Route: 048
  4. L-THYROXIN-NATRIUM [Concomitant]
     Indication: Autoimmune thyroiditis
     Dosage: 75 UG
     Route: 048
  5. CHOLECALCIFEROL [Concomitant]
     Active Substance: CHOLECALCIFEROL
     Indication: Vitamin D deficiency
     Dosage: 1000 IU, 1X/DAY
  6. FUROSEMIDE [Concomitant]
     Active Substance: FUROSEMIDE
     Indication: Renal failure
     Dosage: 20 MG, 1X/DAY
     Route: 048

REACTIONS (4)
  - Eye movement disorder [Recovered/Resolved]
  - Hot flush [Recovered/Resolved]
  - Dizziness [Recovered/Resolved]
  - Unresponsive to stimuli [Recovered/Resolved]

NARRATIVE: CASE EVENT DATE: 20230728
